FAERS Safety Report 8430699 (Version 4)
Quarter: 2015Q1

REPORT INFORMATION
  Report Type: Report from Study
  Country: PL (occurrence: PL)
  Receive Date: 20120228
  Receipt Date: 20150120
  Transmission Date: 20150721
  Serious: Yes (Other)
  Sender: FDA-Public Use
  Company Number: PL-ROCHE-1026068

PATIENT
  Age: 60 Year
  Sex: Female
  Weight: 61.5 kg

DRUGS (2)
  1. FLUDROCORTISONE [Concomitant]
     Active Substance: FLUDROCORTISONE
     Dosage: 1 DROP
     Route: 065
     Dates: start: 20120124
  2. VEMURAFENIB [Suspect]
     Active Substance: VEMURAFENIB
     Indication: METASTATIC MALIGNANT MELANOMA
     Dosage: DATE OF LAST DOSE: 27/DEC/2011
     Route: 048
     Dates: start: 20111102

REACTIONS (1)
  - Fibrous histiocytoma [Recovered/Resolved]

NARRATIVE: CASE EVENT DATE: 20111227
